FAERS Safety Report 4282058-6 (Version None)
Quarter: 2004Q1

REPORT INFORMATION
  Report Type: 
  Country: None (occurrence: None)
  Receive Date: 20040128
  Receipt Date: 20040116
  Transmission Date: 20041129
  Serious: Yes (Hospitalization, Disabling)
  Sender: FDA-Public Use
  Company Number: 2002-FF-00579FF

PATIENT
  Age: 39 Year
  Sex: Male

DRUGS (4)
  1. VIRAMUNE [Suspect]
     Indication: HIV INFECTION
     Dosage: 400 MG (200 MG) PO
     Route: 048
     Dates: start: 20000429
  2. BACTRIM [Concomitant]
  3. VIDEX [Concomitant]
  4. ZERIT [Concomitant]

REACTIONS (2)
  - BONE PAIN [None]
  - OSTEONECROSIS [None]
